FAERS Safety Report 4635748-7 (Version None)
Quarter: 2005Q2

REPORT INFORMATION
  Report Type: 
  Country: None (occurrence: None)
  Receive Date: 20050414
  Receipt Date: 20050329
  Transmission Date: 20051028
  Serious: Yes (Hospitalization)
  Sender: FDA-Public Use
  Company Number: RENA-11238

PATIENT
  Age: 66 Year
  Sex: Male
  Weight: 50.5 kg

DRUGS (7)
  1. RENAGEL [Suspect]
     Indication: HYPERPHOSPHATAEMIA
     Dosage: 0.75 G TID PO
     Route: 048
     Dates: start: 20040928, end: 20041120
  2. MUCOSTA [Concomitant]
  3. CEREKINON [Concomitant]
  4. GASTER [Concomitant]
  5. NITOROL [Concomitant]
  6. PANALDINE [Concomitant]
  7. PURSENNID [Concomitant]

REACTIONS (1)
  - ILEUS PARALYTIC [None]
